FAERS Safety Report 12366291 (Version 2)
Quarter: 2016Q2

REPORT INFORMATION
  Report Type: Spontaneous
  Country: US (occurrence: US)
  Receive Date: 20160513
  Receipt Date: 20160513
  Transmission Date: 20160815
  Serious: Yes (Hospitalization)
  Sender: FDA-Public Use
  Company Number: US-ACTELION-A-NJ2016-136161

PATIENT
  Age: 60 Year
  Sex: Female

DRUGS (12)
  1. ATORVASTATIN [Concomitant]
     Active Substance: ATORVASTATIN
  2. VELETRI [Suspect]
     Active Substance: EPOPROSTENOL
     Indication: PULMONARY ARTERIAL HYPERTENSION
     Dosage: 5.1 NG/KG, PER MIN
     Route: 042
     Dates: start: 20141017
  3. PREMARIN [Concomitant]
     Active Substance: ESTROGENS, CONJUGATED
  4. NORVASC [Concomitant]
     Active Substance: AMLODIPINE BESYLATE
  5. METOPROLOL. [Concomitant]
     Active Substance: METOPROLOL
  6. OPSUMIT [Suspect]
     Active Substance: MACITENTAN
     Indication: PULMONARY ARTERIAL HYPERTENSION
     Dosage: 10 MG, QD
     Route: 048
     Dates: start: 20140128
  7. RIOCIGUAT [Concomitant]
     Active Substance: RIOCIGUAT
  8. CLOPIDOGREL [Concomitant]
     Active Substance: CLOPIDOGREL BISULFATE
  9. LASIX [Concomitant]
     Active Substance: FUROSEMIDE
  10. OMPRAZOLE [Concomitant]
     Active Substance: OMEPRAZOLE
  11. LOSARTAN. [Concomitant]
     Active Substance: LOSARTAN
  12. TRAMADOL. [Concomitant]
     Active Substance: TRAMADOL

REACTIONS (1)
  - Device infusion issue [Recovered/Resolved]

NARRATIVE: CASE EVENT DATE: 20160428
